FAERS Safety Report 6910054-6 (Version None)
Quarter: 2010Q3

REPORT INFORMATION
  Report Type: 
  Country: None (occurrence: None)
  Receive Date: 20100806
  Receipt Date: 20100726
  Transmission Date: 20110219
  Serious: Yes (Death, Hospitalization)
  Sender: FDA-Public Use
  Company Number: JP-JNJFOC-20100510412

PATIENT
  Sex: Female
  Weight: 34 kg

DRUGS (20)
  1. DOXIL [Suspect]
     Indication: OVARIAN CANCER RECURRENT
     Route: 042
  2. ZOMETA [Concomitant]
     Route: 042
  3. OPSO [Concomitant]
     Route: 048
  4. DUROTEP [Concomitant]
     Route: 062
  5. DUROTEP [Concomitant]
     Route: 062
  6. DUROTEP [Concomitant]
     Route: 062
  7. APIDRA [Concomitant]
     Route: 065
  8. JUVELA [Concomitant]
     Route: 065
  9. WHITE PETROLATUM [Concomitant]
     Route: 061
  10. LASIX [Concomitant]
     Route: 042
  11. SOLDACTONE [Concomitant]
     Route: 042
  12. ROHYPNOL [Concomitant]
     Route: 048
  13. APREPITANT [Concomitant]
     Route: 048
  14. APREPITANT [Concomitant]
     Route: 048
  15. SEROTONE [Concomitant]
     Route: 042
  16. DECADRON [Concomitant]
     Route: 042
  17. DECADRON [Concomitant]
     Route: 042
  18. DECADRON [Concomitant]
     Route: 042
  19. FULCALIQ [Concomitant]
     Route: 042
  20. FULCALIQ [Concomitant]
     Route: 042

REACTIONS (11)
  - ALANINE AMINOTRANSFERASE INCREASED [None]
  - ANAEMIA [None]
  - ASPARTATE AMINOTRANSFERASE INCREASED [None]
  - BLOOD ALKALINE PHOSPHATASE INCREASED [None]
  - BLOOD GLUCOSE INCREASED [None]
  - DELIRIUM [None]
  - FATIGUE [None]
  - HYPOAESTHESIA [None]
  - NAUSEA [None]
  - OVARIAN CANCER [None]
  - VOMITING [None]
